FAERS Safety Report 8923181 (Version 2)
Quarter: 2012Q4

REPORT INFORMATION
  Report Type: 
  Country: US (occurrence: US)
  Receive Date: 20121123
  Receipt Date: 20121224
  Transmission Date: 20130627
  Serious: Yes (Other)
  Sender: FDA-Public Use
  Company Number: US-ROCHE-1158047

PATIENT
  Sex: Male
  Weight: 89.44 kg

DRUGS (3)
  1. XOLAIR [Suspect]
     Indication: ASTHMA
     Route: 058
     Dates: start: 20120115
  2. SPIRIVA [Concomitant]
     Indication: BLOOD PRESSURE
     Route: 065
     Dates: start: 20120905
  3. LOSARTAN [Concomitant]
     Indication: BLOOD PRESSURE
     Route: 065
     Dates: start: 20120905

REACTIONS (1)
  - Anaphylactoid reaction [Unknown]
